FAERS Safety Report 13615091 (Version 3)
Quarter: 2017Q3

REPORT INFORMATION
  Report Type: Report from Study
  Country: BE (occurrence: BE)
  Receive Date: 20170606
  Receipt Date: 20170814
  Transmission Date: 20171127
  Serious: Yes (Hospitalization)
  Sender: FDA-Public Use
  Company Number: BE-ROCHE-1908818

PATIENT
  Age: 66 Year
  Sex: Male

DRUGS (1)
  1. PIRFENIDONE. [Suspect]
     Active Substance: PIRFENIDONE
     Indication: IDIOPATHIC PULMONARY FIBROSIS
     Route: 048

REACTIONS (8)
  - Dizziness [Unknown]
  - Myalgia [Recovered/Resolved]
  - Pruritus [Unknown]
  - Chills [Recovered/Resolved]
  - Gastrointestinal disorder [Unknown]
  - Respiratory disorder [Recovered/Resolved]
  - General physical health deterioration [Recovered/Resolved]
  - Oxygen saturation decreased [Recovered/Resolved]

NARRATIVE: CASE EVENT DATE: 20151028
